FAERS Safety Report 9382021 (Version 2)
Quarter: 2013Q3

REPORT INFORMATION
  Report Type: Spontaneous
  Country: FR (occurrence: FR)
  Receive Date: 20130703
  Receipt Date: 20130711
  Transmission Date: 20140515
  Serious: Yes (Hospitalization, Other)
  Sender: FDA-Public Use
  Company Number: FR-PFIZER INC-2013196678

PATIENT
  Age: 37 Year
  Sex: Female

DRUGS (3)
  1. EFFEXOR LP [Suspect]
     Indication: DEPRESSION
     Dosage: 37.5 MG, 2X/DAY
     Route: 048
     Dates: end: 20130124
  2. EFFEXOR LP [Suspect]
     Indication: SOCIAL PHOBIA
  3. ATARAX [Suspect]
     Indication: SLEEP DISORDER
     Dosage: 25 MG, 1X/DAY
     Route: 048
     Dates: end: 20130124

REACTIONS (5)
  - Cholestasis of pregnancy [Unknown]
  - Uterine rupture [Unknown]
  - Off label use [Unknown]
  - Pruritus [Unknown]
  - Insomnia [Unknown]
